FAERS Safety Report 25105749 (Version 1)
Quarter: 2025Q1

REPORT INFORMATION
  Report Type: Spontaneous
  Country: US (occurrence: US)
  Receive Date: 20250321
  Receipt Date: 20250321
  Transmission Date: 20250409
  Serious: Yes (Other)
  Sender: BRAEBURN PHARMACEUTICALS
  Company Number: US-BRAEBURN-US-BRA-24-001247

PATIENT
  Sex: Female

DRUGS (2)
  1. BRIXADI [Suspect]
     Active Substance: BUPRENORPHINE
     Indication: Product used for unknown indication
     Dosage: UNK UNK, WEEKLY
     Route: 065
  2. BRIXADI [Suspect]
     Active Substance: BUPRENORPHINE
     Dosage: UNK UNK, MONTHLY
     Route: 065

REACTIONS (4)
  - Pharyngeal swelling [Unknown]
  - Hypersensitivity [Unknown]
  - Vomiting [Unknown]
  - Thirst [Unknown]

NARRATIVE: CASE EVENT DATE: 20241212
